FAERS Safety Report 9795251 (Version 1)
Quarter: 2014Q1

REPORT INFORMATION
  Report Type: Spontaneous
  Country: FR (occurrence: FR)
  Receive Date: 20140103
  Receipt Date: 20140103
  Transmission Date: 20141002
  Serious: Yes (Other)
  Sender: FDA-Public Use
  Company Number: FR-ROCHE-1328547

PATIENT
  Age: 87 Year
  Sex: Male

DRUGS (4)
  1. ROCEPHINE [Suspect]
     Indication: LUNG INFECTION
     Route: 065
     Dates: start: 20130930, end: 20131007
  2. PREVISCAN (FRANCE) [Interacting]
     Indication: PULMONARY EMBOLISM
     Dosage: 20 MG
     Route: 048
     Dates: start: 20131003
  3. PREVISCAN (FRANCE) [Interacting]
     Dosage: DOSE REDUCED
     Route: 048
  4. LOVENOX [Concomitant]
     Indication: PULMONARY EMBOLISM
     Route: 065
     Dates: start: 20131003

REACTIONS (1)
  - International normalised ratio increased [Recovered/Resolved]
